FAERS Safety Report 14570785 (Version 2)
Quarter: 2018Q2

REPORT INFORMATION
  Report Type: Spontaneous
  Country: US (occurrence: US)
  Receive Date: 20180226
  Receipt Date: 20180531
  Transmission Date: 20180711
  Serious: Yes (Other)
  Sender: FDA-Public Use
  Company Number: US-AMGEN-USASP2018024851

PATIENT
  Sex: Male

DRUGS (5)
  1. VITAMIN D [Concomitant]
     Active Substance: CHOLECALCIFEROL
     Dosage: UNK
  2. GABAPENTIN. [Suspect]
     Active Substance: GABAPENTIN
     Indication: PRODUCT USED FOR UNKNOWN INDICATION
     Dosage: UNK
     Route: 065
  3. VITAMIN B12 [Concomitant]
     Active Substance: CYANOCOBALAMIN
     Dosage: UNK
  4. ENBREL [Suspect]
     Active Substance: ETANERCEPT
     Indication: PRODUCT USED FOR UNKNOWN INDICATION
     Dosage: UNK
     Route: 065
  5. HUMIRA [Suspect]
     Active Substance: ADALIMUMAB
     Indication: PSORIATIC ARTHROPATHY
     Dosage: UNK
     Route: 058

REACTIONS (12)
  - Puncture site haemorrhage [Unknown]
  - Blood disorder [Unknown]
  - Cerebral disorder [Unknown]
  - Drug effect incomplete [Not Recovered/Not Resolved]
  - Memory impairment [Unknown]
  - Red blood cell abnormality [Unknown]
  - Joint warmth [Not Recovered/Not Resolved]
  - Eye pruritus [Unknown]
  - Injection site haemorrhage [Unknown]
  - Psoriasis [Recovered/Resolved]
  - Haemorrhage [Unknown]
  - Blepharospasm [Unknown]
